FAERS Safety Report 22592019 (Version 1)
Quarter: 2023Q2

REPORT INFORMATION
  Report Type: Spontaneous
  Country: US (occurrence: None)
  Receive Date: 20230612
  Receipt Date: 20230612
  Transmission Date: 20230722
  Serious: No
  Sender: FDA-Public Use
  Company Number: US-ROCHE-3277907

PATIENT
  Sex: Female

DRUGS (2)
  1. TECENTRIQ [Suspect]
     Active Substance: ATEZOLIZUMAB
     Indication: Lung carcinoma cell type unspecified stage III
     Route: 041
     Dates: start: 202203, end: 202205
  2. PREDNISONE [Suspect]
     Active Substance: PREDNISONE
     Indication: Lung neoplasm malignant
     Dosage: ONGOING: YES
     Route: 065
     Dates: start: 202205

REACTIONS (6)
  - Nausea [Recovered/Resolved]
  - Lethargy [Recovered/Resolved]
  - Metabolic function test abnormal [Recovered/Resolved]
  - Insomnia [Not Recovered/Not Resolved]
  - Drug ineffective [Unknown]
  - Liver disorder [Unknown]

NARRATIVE: CASE EVENT DATE: 20220301
